FAERS Safety Report 25287891 (Version 1)
Quarter: 2025Q2

REPORT INFORMATION
  Report Type: Spontaneous
  Country: FR (occurrence: FR)
  Receive Date: 20250509
  Receipt Date: 20250509
  Transmission Date: 20250716
  Serious: Yes (Other)
  Sender: ELI LILLY AND COMPANY
  Company Number: None

PATIENT
  Age: 72 Year
  Sex: Male
  Weight: 69 kg

DRUGS (3)
  1. FLUOXETINE HYDROCHLORIDE [Interacting]
     Active Substance: FLUOXETINE HYDROCHLORIDE
     Indication: Mixed anxiety and depressive disorder
     Dosage: 20 MG, DAILY
     Route: 048
  2. KARDEGIC [Interacting]
     Active Substance: ASPIRIN DL-LYSINE
     Indication: Product used for unknown indication
     Dosage: 75 MG, DAILY
     Route: 048
     Dates: start: 20250329, end: 20250405
  3. INNOHEP [Interacting]
     Active Substance: TINZAPARIN SODIUM
     Indication: Thrombosis prophylaxis
     Route: 058
     Dates: start: 202503, end: 20250403

REACTIONS (2)
  - Epistaxis [Not Recovered/Not Resolved]
  - Drug interaction [Not Recovered/Not Resolved]

NARRATIVE: CASE EVENT DATE: 20250403
